FAERS Safety Report 6731339-2 (Version None)
Quarter: 2010Q2

REPORT INFORMATION
  Report Type: 
  Country: None (occurrence: None)
  Receive Date: 20100517
  Receipt Date: 20100517
  Transmission Date: 20101027
  Serious: Yes (Life-Threatening, Hospitalization, Disabling)
  Sender: FDA-Public Use
  Company Number: None

PATIENT
  Age: 29 Year
  Sex: Female
  Weight: 58.514 kg

DRUGS (1)
  1. MIRENA [Suspect]
     Indication: CONTRACEPTION
     Dates: start: 20090410, end: 20100514

REACTIONS (10)
  - CRYING [None]
  - DEPRESSED MOOD [None]
  - DEVICE DISLOCATION [None]
  - FATIGUE [None]
  - HYPOTHYROIDISM [None]
  - MOOD SWINGS [None]
  - MUSCLE SPASMS [None]
  - PAIN [None]
  - UTERINE PERFORATION [None]
  - VAGINAL HAEMORRHAGE [None]
